FAERS Safety Report 5366859-9 (Version None)
Quarter: 2007Q2

REPORT INFORMATION
  Report Type: 
  Country: None (occurrence: None)
  Receive Date: 20070622
  Receipt Date: 20061201
  Transmission Date: 20071010
  Serious: No
  Sender: FDA-Public Use
  Company Number: US-ASTRAZENECA-2006UW26873

PATIENT
  Age: 76 Year
  Sex: Female
  Weight: 45.4 kg

DRUGS (3)
  1. RHINOCORT [Suspect]
     Indication: HYPERSENSITIVITY
     Dosage: 1 SPRAY PER NOSTRIL
     Route: 045
  2. MULTI-VITAMIN [Concomitant]
  3. LESCOL [Concomitant]

REACTIONS (1)
  - HEADACHE [None]
